FAERS Safety Report 8577344 (Version 3)
Quarter: 2012Q4

REPORT INFORMATION
  Report Type: 
  Country: GB (occurrence: GB)
  Receive Date: 20120524
  Receipt Date: 20121108
  Transmission Date: 20130627
  Serious: Yes (Hospitalization)
  Sender: FDA-Public Use
  Company Number: PHFR2012GB003073

PATIENT
  Age: 44 Year
  Sex: Female

DRUGS (3)
  1. CLOZARIL [Suspect]
     Indication: SCHIZOPHRENIA
     Dosage: 75 mg, daily
     Route: 048
     Dates: start: 20120424, end: 20120514
  2. CLOZARIL [Suspect]
     Dosage: 50 mg, daily
     Route: 048
     Dates: start: 20120512, end: 20120518
  3. DEPAKOTE [Concomitant]
     Indication: AFFECTIVE DISORDER
     Dosage: 500 mg
     Route: 048
     Dates: start: 20110816

REACTIONS (5)
  - Viral infection [Unknown]
  - Body temperature increased [Recovered/Resolved]
  - C-reactive protein increased [Unknown]
  - Lower respiratory tract infection [Recovered/Resolved]
  - Neutrophil count increased [Unknown]
